FAERS Safety Report 18529230 (Version 3)
Quarter: 2021Q1

REPORT INFORMATION
  Report Type: Spontaneous
  Country: US (occurrence: US)
  Receive Date: 20201120
  Receipt Date: 20210101
  Transmission Date: 20210419
  Serious: No
  Sender: FDA-Public Use
  Company Number: US-BAUSCH-BL-2020-032137

PATIENT
  Age: 61 Year
  Sex: Female
  Weight: 56.75 kg

DRUGS (3)
  1. LUMIFY [Suspect]
     Active Substance: BRIMONIDINE TARTRATE
     Indication: OCULAR HYPERAEMIA
     Dosage: STARTED ABOUT A WEEK AGO?AS NEEDED (2?3 TIMES A DAY)
     Route: 047
     Dates: start: 202010
  2. OCUVITE [Suspect]
     Active Substance: VITAMINS
     Indication: OCULAR HYPERAEMIA
     Route: 065
  3. OCUVITE [Suspect]
     Active Substance: VITAMINS
     Indication: PRODUCT USE IN UNAPPROVED INDICATION

REACTIONS (3)
  - Therapeutic product effect decreased [Unknown]
  - Product use in unapproved indication [Unknown]
  - Drug ineffective for unapproved indication [Unknown]

NARRATIVE: CASE EVENT DATE: 202010
